FAERS Safety Report 7141409-5 (Version None)
Quarter: 2010Q4

REPORT INFORMATION
  Report Type: 
  Country: None (occurrence: None)
  Receive Date: 20101203
  Receipt Date: 20101203
  Transmission Date: 20110411
  Serious: No
  Sender: FDA-Public Use
  Company Number: None

PATIENT
  Sex: Female

DRUGS (1)
  1. HUMIRA [Suspect]
     Dosage: 40 MG Q2W SQ
     Route: 058
     Dates: start: 20100801, end: 20101201

REACTIONS (1)
  - INAPPROPRIATE SCHEDULE OF DRUG ADMINISTRATION [None]
